FAERS Safety Report 9065109 (Version 1)
Quarter: 2013Q1

REPORT INFORMATION
  Report Type: Spontaneous
  Country: US (occurrence: US)
  Receive Date: 20130214
  Receipt Date: 20130214
  Transmission Date: 20140127
  Serious: Yes (Other)
  Sender: FDA-Public Use
  Company Number: US-PFIZER INC-2013053345

PATIENT
  Sex: Male

DRUGS (1)
  1. LYRICA [Suspect]
     Indication: NEURALGIA
     Dosage: UNK, 3X/DAY
     Dates: start: 20130127

REACTIONS (3)
  - Gait disturbance [Unknown]
  - Local swelling [Unknown]
  - Joint swelling [Unknown]
